FAERS Safety Report 5995101-0 (Version None)
Quarter: 2008Q4

REPORT INFORMATION
  Report Type: 
  Country: None (occurrence: None)
  Receive Date: 20081212
  Receipt Date: 20081201
  Transmission Date: 20090506
  Serious: Yes (Hospitalization)
  Sender: FDA-Public Use
  Company Number: FR-PFIZER INC-2008051268

PATIENT

DRUGS (2)
  1. SUNITINIB MALATE [Suspect]
     Indication: BREAST CANCER
     Dosage: 37.5 MG, 1X/DAY
     Route: 048
     Dates: start: 20071113, end: 20080603
  2. *TRASTUZUMAB [Suspect]
     Indication: BREAST CANCER
     Dosage: 315 MG, EVERY 3 WEEKS
     Route: 042
     Dates: start: 20081113, end: 20081113

REACTIONS (1)
  - ANAL FISTULA [None]
